FAERS Safety Report 9338399 (Version 2)
Quarter: 2013Q2

REPORT INFORMATION
  Report Type: Spontaneous
  Country: US (occurrence: US)
  Receive Date: 20130610
  Receipt Date: 20130611
  Transmission Date: 20140414
  Serious: No
  Sender: FDA-Public Use
  Company Number: US-PFIZER INC-2013173293

PATIENT
  Age: 49 Year
  Sex: Male
  Weight: 114.74 kg

DRUGS (6)
  1. CHANTIX [Suspect]
     Indication: SMOKING CESSATION THERAPY
     Dosage: UNK
     Route: 048
     Dates: start: 2013, end: 2013
  2. CHANTIX [Interacting]
     Dosage: 1 MG, 1X/DAY
     Route: 048
     Dates: start: 2013
  3. NAMENDA [Interacting]
     Indication: SUPPLEMENTATION THERAPY
     Dosage: 10 MG, DAILY
  4. NAMENDA [Interacting]
     Dosage: 10 MG, 2 TIMES A DAY
     Dates: start: 2013
  5. HYDROCODONE [Concomitant]
     Indication: NERVE COMPRESSION
     Dosage: UNK
  6. MORPHINE [Concomitant]
     Dosage: 30 MG, UNK

REACTIONS (5)
  - Drug interaction [Unknown]
  - Blood testosterone decreased [Unknown]
  - Abnormal dreams [Unknown]
  - Pre-existing condition improved [Unknown]
  - Therapeutic response unexpected [Unknown]
